FAERS Safety Report 8038606-3 (Version None)
Quarter: 2012Q1

REPORT INFORMATION
  Report Type: 
  Country: None (occurrence: None)
  Receive Date: 20120111
  Receipt Date: 20111205
  Transmission Date: 20120608
  Serious: No
  Sender: FDA-Public Use
  Company Number: US-AMGEN-USASP2011064420

PATIENT
  Age: 58 Year
  Sex: Female

DRUGS (1)
  1. ENBREL [Suspect]
     Indication: RHEUMATOID ARTHRITIS
     Dosage: 50 MG, QWK
     Dates: start: 20110509

REACTIONS (10)
  - NAUSEA [None]
  - FEELING COLD [None]
  - DIARRHOEA [None]
  - MIGRAINE [None]
  - DECREASED APPETITE [None]
  - DIZZINESS [None]
  - FREQUENT BOWEL MOVEMENTS [None]
  - CHILLS [None]
  - TENDERNESS [None]
  - BACTERIAL INFECTION [None]
